FAERS Safety Report 23602588 (Version 3)
Quarter: 2024Q3

REPORT INFORMATION
  Report Type: Spontaneous
  Country: US (occurrence: US)
  Receive Date: 20240306
  Receipt Date: 20240715
  Transmission Date: 20241016
  Serious: Yes (Other)
  Sender: BRISTOL MYERS SQUIBB
  Company Number: US-BRISTOL-MYERS SQUIBB COMPANY-2024-035807

PATIENT
  Age: 77 Year
  Sex: Female

DRUGS (2)
  1. LENALIDOMIDE [Suspect]
     Active Substance: LENALIDOMIDE
     Indication: Plasma cell myeloma
     Dosage: TAKE 1 WHOLE CAPSULE BY MOUTH WITH WATER EVERY DAY FOR 21 DAYS ON THEN 7 DAYS OFF (28 DAY CYCLE
     Route: 048
  2. LENALIDOMIDE [Suspect]
     Active Substance: LENALIDOMIDE
     Dosage: TAKE 1 CAPSULE WHOLE BY MOUTH WITH WATER EVERY DAY FOR 21 DAYS ON THEN 7 DAYS OFF. DO NOT BREAK, CHE
     Route: 048

REACTIONS (8)
  - White blood cell count decreased [Recovering/Resolving]
  - Product prescribing issue [Unknown]
  - Hypoaesthesia [Recovering/Resolving]
  - Injury [Not Recovered/Not Resolved]
  - Foot fracture [Not Recovered/Not Resolved]
  - Fall [Unknown]
  - Muscle spasms [Not Recovered/Not Resolved]
  - Carpal tunnel syndrome [Unknown]
